FAERS Safety Report 6404565-X (Version None)
Quarter: 2009Q4

REPORT INFORMATION
  Report Type: 
  Country: None (occurrence: None)
  Receive Date: 20091016
  Receipt Date: 20091007
  Transmission Date: 20100525
  Serious: Yes (Hospitalization, Other)
  Sender: FDA-Public Use
  Company Number: PHHO2009US06799

PATIENT
  Sex: Male
  Weight: 54.5 kg

DRUGS (12)
  1. RAD 666 RAD+TAB [Suspect]
     Indication: RENAL TRANSPLANT
     Dosage: 1.5 MG, BID
     Route: 048
     Dates: start: 20040904
  2. TACROLIMUS [Concomitant]
  3. CYCLOSPORINE [Concomitant]
     Indication: RENAL TRANSPLANT
     Dosage: 100 MG, BID
     Dates: start: 20051008
  4. PREDNISONE [Concomitant]
     Indication: RENAL TRANSPLANT
     Dosage: 10 MG, QD
     Dates: start: 20010503
  5. METOPROLOL [Concomitant]
  6. AMLODIPINE [Concomitant]
  7. MINOXIDIL [Concomitant]
  8. INSULIN [Concomitant]
  9. HEPARIN [Concomitant]
  10. ACTONEL [Concomitant]
  11. MULTI-VITAMIN [Concomitant]
  12. CALCIUM CITRATE [Concomitant]

REACTIONS (25)
  - ABDOMINAL ABSCESS [None]
  - ABDOMINAL PAIN [None]
  - ADRENAL INSUFFICIENCY [None]
  - ARTHRALGIA [None]
  - BACK PAIN [None]
  - BLOOD CREATININE INCREASED [None]
  - CHILLS [None]
  - DECREASED APPETITE [None]
  - DEHYDRATION [None]
  - DIARRHOEA [None]
  - DYSPNOEA [None]
  - HEADACHE [None]
  - HYPOTENSION [None]
  - INTERNATIONAL NORMALISED RATIO INCREASED [None]
  - INTESTINAL DILATATION [None]
  - LEUKOCYTOSIS [None]
  - LUNG HYPERINFLATION [None]
  - MALNUTRITION [None]
  - MYALGIA [None]
  - NAUSEA [None]
  - PNEUMATOSIS [None]
  - PYREXIA [None]
  - VOMITING [None]
  - WEIGHT DECREASED [None]
  - WHITE BLOOD CELL COUNT INCREASED [None]
